FAERS Safety Report 20662200 (Version 3)
Quarter: 2022Q2

REPORT INFORMATION
  Report Type: Spontaneous
  Country: ZA (occurrence: ZA)
  Receive Date: 20220401
  Receipt Date: 20220510
  Transmission Date: 20220721
  Serious: Yes (Hospitalization, Other)
  Sender: FDA-Public Use
  Company Number: ZA-NOVARTISPH-NVSC2022ZA071181

PATIENT

DRUGS (1)
  1. SIPONIMOD [Suspect]
     Active Substance: SIPONIMOD
     Indication: Product used for unknown indication
     Dosage: UNK
     Route: 065

REACTIONS (7)
  - Tremor [Unknown]
  - Multiple sclerosis [Unknown]
  - Aphasia [Unknown]
  - Dysarthria [Unknown]
  - Disease recurrence [Unknown]
  - Dystonic tremor [Unknown]
  - Asthenia [Unknown]
